FAERS Safety Report 7039427-0 (Version None)
Quarter: 2010Q4

REPORT INFORMATION
  Report Type: 
  Country: None (occurrence: None)
  Receive Date: 20101012
  Receipt Date: 20101006
  Transmission Date: 20110411
  Serious: Yes (Death, Hospitalization)
  Sender: FDA-Public Use
  Company Number: FR-ROCHE-719548

PATIENT
  Age: 47 Year
  Sex: Female
  Weight: 54 kg

DRUGS (4)
  1. BEVACIZUMAB [Suspect]
     Indication: GLIOBLASTOMA
     Dosage: FREQUENCY :FROM DAY 1 TO 15 AND ON 28 TH DAY, LAST DOSE PRIOR TO SAE: 08 JULY 2010,
     Route: 042
     Dates: start: 20091230
  2. IRINOTECAN [Suspect]
     Indication: GLIOBLASTOMA
     Dosage: FRQUENCY: FROM DAY 1 TO 15 AND ON 28 TH DAY,LAST DOSE PRIOR TO SAE: 08 JULY 2010,
     Route: 042
     Dates: start: 20091230
  3. TEMOZOLOMIDE [Suspect]
     Indication: GLIOBLASTOMA
     Dosage: LAST DOSE: 120 MG ON 25 SEPTEMBER 2010.
     Route: 048
     Dates: start: 20100315
  4. MEDROL [Concomitant]
     Dates: start: 20091101, end: 20100712

REACTIONS (2)
  - CARDIAC ARREST [None]
  - CEREBRAL HAEMORRHAGE [None]
